FAERS Safety Report 5809338-4 (Version None)
Quarter: 2008Q3

REPORT INFORMATION
  Report Type: 
  Country: None (occurrence: None)
  Receive Date: 20080714
  Receipt Date: 20080701
  Transmission Date: 20090109
  Serious: Yes (Hospitalization)
  Sender: FDA-Public Use
  Company Number: PHBS2008IT04993

PATIENT
  Age: 60 Year
  Sex: Female

DRUGS (1)
  1. BACLOFEN [Suspect]
     Indication: MUSCLE SPASTICITY
     Dosage: 100 MG/DIE

REACTIONS (15)
  - ANXIETY [None]
  - AREFLEXIA [None]
  - BLOOD CREATININE INCREASED [None]
  - DELIRIUM [None]
  - DISORIENTATION [None]
  - ELECTROENCEPHALOGRAM ABNORMAL [None]
  - ENCEPHALOPATHY [None]
  - HALLUCINATION, VISUAL [None]
  - HYPOTONIA [None]
  - NEUROTOXICITY [None]
  - OVERDOSE [None]
  - RENAL IMPAIRMENT [None]
  - STUPOR [None]
  - TREMOR [None]
  - URINARY TRACT INFECTION [None]
